FAERS Safety Report 13662191 (Version 2)
Quarter: 2017Q3

REPORT INFORMATION
  Report Type: Report from Study
  Country: JP (occurrence: JP)
  Receive Date: 20170616
  Receipt Date: 20170726
  Transmission Date: 20171127
  Serious: Yes (Other)
  Sender: FDA-Public Use
  Company Number: JP-ARIAD PHARMACEUTICALS, INC-2017JP008412

PATIENT
  Age: 77 Year
  Sex: Female
  Weight: 43 kg

DRUGS (5)
  1. MERCAPTOPURINE. [Concomitant]
     Active Substance: MERCAPTOPURINE
     Dosage: 10 MG, DAILY DOSE
     Route: 065
     Dates: start: 20161004, end: 20161124
  2. MERCAPTOPURINE. [Concomitant]
     Active Substance: MERCAPTOPURINE
     Dosage: 10 MG, DAILY DOSE
     Route: 065
     Dates: start: 20161024, end: 20161124
  3. PREDONINE [Concomitant]
     Active Substance: PREDNISOLONE
     Indication: ACUTE LYMPHOCYTIC LEUKAEMIA
     Dosage: 10 MG, DAILY DOSE
     Route: 065
     Dates: start: 20160920, end: 20170124
  4. ICLUSIG [Suspect]
     Active Substance: PONATINIB
     Indication: ACUTE LYMPHOCYTIC LEUKAEMIA
     Dosage: 15 MG, DAILY DOSE
     Route: 048
     Dates: start: 20161129
  5. MERCAPTOPURINE. [Concomitant]
     Active Substance: MERCAPTOPURINE
     Indication: ACUTE LYMPHOCYTIC LEUKAEMIA
     Dosage: BETWEEN 20 AND 30MG, DAILY DOSE
     Route: 065
     Dates: start: 20160920, end: 20161009

REACTIONS (4)
  - Thrombocytopenia [Recovered/Resolved]
  - Neutropenia [Recovered/Resolved]
  - Hyperuricaemia [Recovered/Resolved]
  - Erythropenia [Recovered/Resolved]

NARRATIVE: CASE EVENT DATE: 20161130
